FAERS Safety Report 20854917 (Version 3)
Quarter: 2022Q2

REPORT INFORMATION
  Report Type: Report from Study
  Country: EG (occurrence: EG)
  Receive Date: 20220520
  Receipt Date: 20220613
  Transmission Date: 20220720
  Serious: Yes (Other)
  Sender: FDA-Public Use
  Company Number: EG-NOVARTISPH-NVSC2021EG294108

PATIENT
  Sex: Female

DRUGS (1)
  1. GILENYA [Suspect]
     Active Substance: FINGOLIMOD HYDROCHLORIDE
     Indication: Multiple sclerosis
     Dosage: 0.5 MG, QD
     Route: 048
     Dates: start: 2020

REACTIONS (8)
  - Skin infection [Not Recovered/Not Resolved]
  - Immunodeficiency [Recovering/Resolving]
  - White blood cells urine positive [Not Recovered/Not Resolved]
  - Bacteriuria [Not Recovered/Not Resolved]
  - Muscular weakness [Not Recovered/Not Resolved]
  - White blood cell count decreased [Recovering/Resolving]
  - Off label use [Unknown]
  - Inappropriate schedule of product administration [Unknown]

NARRATIVE: CASE EVENT DATE: 20200101
